FAERS Safety Report 7183506-4 (Version None)
Quarter: 2010Q4

REPORT INFORMATION
  Report Type: 
  Country: None (occurrence: None)
  Receive Date: 20101222
  Receipt Date: 20101215
  Transmission Date: 20110411
  Serious: Yes (Other)
  Sender: FDA-Public Use
  Company Number: US-US-EMD SERONO, INC.-7020870

PATIENT
  Sex: Female

DRUGS (3)
  1. REBIF [Suspect]
     Indication: MULTIPLE SCLEROSIS
     Route: 058
     Dates: start: 20100929, end: 20100101
  2. REBIF [Suspect]
     Route: 058
     Dates: start: 20100101, end: 20101213
  3. UNSPECIFIED SUPPLEMENTS [Concomitant]
     Dates: end: 20101201

REACTIONS (4)
  - ACUTE DISSEMINATED ENCEPHALOMYELITIS [None]
  - HYPERSENSITIVITY [None]
  - INJECTION SITE HAEMORRHAGE [None]
  - INJECTION SITE RASH [None]
